FAERS Safety Report 6235475-9 (Version None)
Quarter: 2009Q2

REPORT INFORMATION
  Report Type: 
  Country: None (occurrence: None)
  Receive Date: 20090618
  Receipt Date: 20080603
  Transmission Date: 20091009
  Serious: No
  Sender: FDA-Public Use
  Company Number: US-ASTRAZENECA-2008UW08023

PATIENT
  Age: 56 Year
  Sex: Male
  Weight: 72.6 kg

DRUGS (6)
  1. RHINOCORT [Suspect]
     Indication: RHINITIS
     Route: 045
  2. RHINOCORT [Suspect]
     Indication: VASOMOTOR RHINITIS
     Route: 045
  3. CLARITIN [Concomitant]
  4. DOXEPIN [Concomitant]
  5. MECLIZINE [Concomitant]
  6. BENTYL [Concomitant]

REACTIONS (3)
  - NASAL CONGESTION [None]
  - SINUS DISORDER [None]
  - THERAPEUTIC RESPONSE DECREASED [None]
